FAERS Safety Report 23188847 (Version 3)
Quarter: 2023Q4

REPORT INFORMATION
  Report Type: Spontaneous
  Country: US (occurrence: US)
  Receive Date: 20231115
  Receipt Date: 20231214
  Transmission Date: 20240110
  Serious: Yes (Other)
  Sender: FDA-Public Use
  Company Number: US-AVADEL CNS PHARMACEUTICALS, LLC-2023AVA00330

PATIENT
  Sex: Female

DRUGS (14)
  1. LUMRYZ [Suspect]
     Active Substance: SODIUM OXYBATE
     Indication: Narcolepsy
     Dosage: 4.5 G,  ONCE NIGHTLY AT BEDTIME ON AN EMPTY STOMACH
     Route: 048
     Dates: start: 20231023, end: 20231029
  2. LUMRYZ [Suspect]
     Active Substance: SODIUM OXYBATE
     Indication: Cataplexy
  3. LUMRYZ [Suspect]
     Active Substance: SODIUM OXYBATE
     Indication: Narcolepsy
     Dosage: 6 G, ONCE NIGHTLY AT BEDTIME ON AN EMPTY STOMACH
     Route: 048
     Dates: start: 20231030, end: 20231105
  4. LUMRYZ [Suspect]
     Active Substance: SODIUM OXYBATE
     Indication: Cataplexy
     Dosage: 6 G,  ONCE NIGHTLY AT BEDTIME ON AN EMPTY STOMACH
     Route: 048
     Dates: start: 20231115
  5. LUMRYZ [Suspect]
     Active Substance: SODIUM OXYBATE
     Indication: Narcolepsy
     Dosage: 7.5 G, ONCE NIGHTLY ONCE NIGHTLY AT BEDTIME ON AN EMPTY STOMACH
     Route: 048
     Dates: start: 20231106, end: 20231106
  6. LUMRYZ [Suspect]
     Active Substance: SODIUM OXYBATE
     Indication: Cataplexy
  7. GABAPENTIN [Concomitant]
     Active Substance: GABAPENTIN
     Dosage: 900 MG, 1X/DAY IN THE MORNING
  8. LIOTHYRONINE [Concomitant]
     Active Substance: LIOTHYRONINE
     Dosage: 5 ?G, 2X/DAY IN MORNING AND AT NIGHT
  9. SERTRALINE [Concomitant]
     Active Substance: SERTRALINE HYDROCHLORIDE
     Dosage: 50 MG, 1X/DAY IN THE MORNING
  10. LEVOTHYROXINE [Concomitant]
     Active Substance: LEVOTHYROXINE
     Dosage: 0.5 MG, 1X/DAY AT NIGHT
  11. FOLIC ACID [Concomitant]
     Active Substance: FOLIC ACID
     Dosage: 1 MG, 1X/DAY AT NIGHT
  12. ESTARYLLA [Concomitant]
     Active Substance: ETHINYL ESTRADIOL\NORGESTIMATE
     Indication: Contraception
     Dosage: UNK, 1X/DAY
  13. DOXYCYCLINE [Concomitant]
     Active Substance: DOXYCYCLINE
     Dosage: 100 MG, 2X/DAY
  14. ALBUTEROL SULFATE [Concomitant]
     Active Substance: ALBUTEROL SULFATE
     Dosage: 2 PUFFS, 2X/DAY

REACTIONS (13)
  - Consciousness fluctuating [Recovered/Resolved]
  - Initial insomnia [Not Recovered/Not Resolved]
  - Middle insomnia [Not Recovered/Not Resolved]
  - Poor quality sleep [Not Recovered/Not Resolved]
  - Incoherent [Recovered/Resolved]
  - Nasopharyngitis [Not Recovered/Not Resolved]
  - Rhinorrhoea [Not Recovered/Not Resolved]
  - Illness [Not Recovered/Not Resolved]
  - Vomiting [Recovered/Resolved]
  - Confusional state [Recovered/Resolved]
  - Nausea [Recovered/Resolved]
  - Somnolence [Not Recovered/Not Resolved]
  - Intentional dose omission [Recovered/Resolved]

NARRATIVE: CASE EVENT DATE: 20230101
